FAERS Safety Report 5171190-0 (Version None)
Quarter: 2006Q4

REPORT INFORMATION
  Report Type: 
  Country: None (occurrence: None)
  Receive Date: 20061213
  Receipt Date: 20051215
  Transmission Date: 20070319
  Serious: Yes (Other)
  Sender: FDA-Public Use
  Company Number: US-AMGEN-STX161518

PATIENT
  Sex: Male

DRUGS (8)
  1. ENBREL [Suspect]
     Indication: PSORIASIS
     Route: 058
     Dates: start: 20020201
  2. CORTICOSTEROID NOS [Suspect]
  3. ANTIBIOTICS NOS [Suspect]
  4. FLOMAX [Concomitant]
  5. PROSCAR [Concomitant]
  6. DOVONEX [Concomitant]
  7. LIPITOR [Concomitant]
  8. COLCHICINE [Concomitant]

REACTIONS (9)
  - ARTHROPOD BITE [None]
  - BRONCHITIS [None]
  - DIABETES MELLITUS [None]
  - HYPERLIPIDAEMIA [None]
  - HYPERTENSION [None]
  - INFECTION [None]
  - KERATOACANTHOMA [None]
  - LOWER RESPIRATORY TRACT INFECTION [None]
  - UPPER RESPIRATORY TRACT INFECTION [None]
